FAERS Safety Report 26177026 (Version 1)
Quarter: 2025Q4

REPORT INFORMATION
  Report Type: Spontaneous
  Country: US (occurrence: US)
  Receive Date: 20251219
  Receipt Date: 20251219
  Transmission Date: 20260117
  Serious: No
  Sender: TEVA
  Company Number: US-TEVA-VS-3401724

PATIENT
  Age: 39 Year
  Sex: Female

DRUGS (1)
  1. QVAR REDIHALER [Suspect]
     Active Substance: BECLOMETHASONE DIPROPIONATE
     Indication: Product used for unknown indication
     Route: 055

REACTIONS (6)
  - Cough [Unknown]
  - Incorrect dose administered [Unknown]
  - Device issue [Unknown]
  - Dyspnoea [Unknown]
  - Product taste abnormal [Unknown]
  - Device leakage [Unknown]
